FAERS Safety Report 7085679-0 (Version None)
Quarter: 2010Q4

REPORT INFORMATION
  Report Type: 
  Country: None (occurrence: None)
  Receive Date: 20101105
  Receipt Date: 20101103
  Transmission Date: 20110411
  Serious: Yes (Hospitalization, Other)
  Sender: FDA-Public Use
  Company Number: US-PFIZER INC-2008048978

PATIENT
  Sex: Female
  Weight: 68 kg

DRUGS (21)
  1. CALAN [Suspect]
     Indication: HYPERTENSION
     Dosage: 120 MG, 2X/DAY
     Route: 048
     Dates: start: 20080101
  2. CALAN [Suspect]
     Dosage: 120 MG, 2X/DAY
     Route: 048
     Dates: start: 20080101
  3. CATAPRES [Concomitant]
  4. AMARYL [Concomitant]
     Indication: DIABETES MELLITUS
  5. BENICAR [Concomitant]
     Dosage: UNK
  6. ACETYLSALICYLIC ACID [Concomitant]
  7. POTASSIUM CHLORIDE [Concomitant]
     Dosage: UNK
  8. NEXIUM [Concomitant]
  9. IBANDRONATE SODIUM [Concomitant]
  10. PREDNISONE [Concomitant]
  11. ZETIA [Concomitant]
     Dosage: UNK
  12. LEVOXYL [Concomitant]
  13. LYRICA [Concomitant]
     Dosage: UNK
  14. TEKTURNA [Concomitant]
  15. METHOTREXATE SODIUM [Concomitant]
  16. ASCORBIC ACID [Concomitant]
  17. MULTI-VITAMINS [Concomitant]
  18. FISH OIL [Concomitant]
  19. INSULIN [Concomitant]
  20. LANTUS [Concomitant]
     Indication: DIABETES MELLITUS
     Dosage: UNK
  21. SYNTHROID [Concomitant]
     Dosage: UNK

REACTIONS (5)
  - ABDOMINAL DISCOMFORT [None]
  - DIARRHOEA [None]
  - HERNIA [None]
  - SLEEP DISORDER [None]
  - WEIGHT INCREASED [None]
